FAERS Safety Report 16723799 (Version 1)
Quarter: 2019Q3

REPORT INFORMATION
  Report Type: Spontaneous
  Country: CA (occurrence: CA)
  Receive Date: 20190821
  Receipt Date: 20190821
  Transmission Date: 20191005
  Serious: Yes (Hospitalization, Other)
  Sender: FDA-Public Use
  Company Number: CA-AUROBINDO-AUR-APL-2019-053957

PATIENT

DRUGS (7)
  1. METFORMIN [Suspect]
     Active Substance: METFORMIN HYDROCHLORIDE
     Indication: PRODUCT USED FOR UNKNOWN INDICATION
     Dosage: 500 MILLIGRAM, 3 TIMES A DAY
     Route: 065
  2. CABERGOLINE. [Suspect]
     Active Substance: CABERGOLINE
     Indication: PRODUCT USED FOR UNKNOWN INDICATION
     Dosage: UNK
     Route: 048
  3. ANDROGEL [Suspect]
     Active Substance: TESTOSTERONE
     Indication: PRODUCT USED FOR UNKNOWN INDICATION
     Dosage: 5 GRAM, ONCE A DAY
     Route: 061
  4. CODEINE [Suspect]
     Active Substance: CODEINE
     Indication: PRODUCT USED FOR UNKNOWN INDICATION
     Dosage: UNK
     Route: 065
  5. SOMAVERT [Suspect]
     Active Substance: PEGVISOMANT
     Indication: ACROMEGALY
     Dosage: UNK, 1 EVERY 1 DAY
     Route: 058
  6. SANDOSTATIN [Suspect]
     Active Substance: OCTREOTIDE ACETATE
     Indication: ACROMEGALY
     Dosage: 30 MILLIGRAM, 1 EVERY 3 WEEK
     Route: 030
  7. CLOPIDOGREL [Suspect]
     Active Substance: CLOPIDOGREL BISULFATE
     Indication: TRANSIENT ISCHAEMIC ATTACK
     Dosage: UNK
     Route: 065

REACTIONS (16)
  - Diabetes mellitus [Unknown]
  - Dysarthria [Unknown]
  - Erectile dysfunction [Unknown]
  - Minimal residual disease [Unknown]
  - Pituitary tumour benign [Unknown]
  - Pituitary enlargement [Unknown]
  - Polyp [Unknown]
  - Transient ischaemic attack [Unknown]
  - Blood pressure abnormal [Unknown]
  - Hyperhidrosis [Unknown]
  - Prognathism [Unknown]
  - Drug ineffective [Unknown]
  - Sleep apnoea syndrome [Unknown]
  - Weight abnormal [Unknown]
  - Joint swelling [Unknown]
  - Osteoarthritis [Unknown]
